FAERS Safety Report 21580339 (Version 3)
Quarter: 2023Q1

REPORT INFORMATION
  Report Type: Report from Study
  Country: TR (occurrence: TR)
  Receive Date: 20221110
  Receipt Date: 20230205
  Transmission Date: 20230418
  Serious: Yes (Death, Other)
  Sender: FDA-Public Use
  Company Number: TR-ABBVIE-4194920

PATIENT
  Sex: Male
  Weight: 73 kg

DRUGS (8)
  1. CARBIDOPA\LEVODOPA [Suspect]
     Active Substance: CARBIDOPA\LEVODOPA
     Indication: Parkinson^s disease
     Dosage: MORNING DOSE (ML): 9.00 CONTINUOUS DOSE (ML): 2.80 EXTRA DOSE (ML): 2.10
     Route: 050
     Dates: start: 20200204
  2. CARBIDOPA\LEVODOPA [Suspect]
     Active Substance: CARBIDOPA\LEVODOPA
  3. COVID-19 vaccine [Concomitant]
     Indication: COVID-19 immunisation
     Dosage: ONE IN ONCE, BOOSTER DOSE
     Route: 030
  4. COVID-19 vaccine [Concomitant]
     Indication: COVID-19 immunisation
     Dosage: SECOND DOSE, ONE IN ONCE
     Route: 030
  5. COVID-19 vaccine [Concomitant]
     Indication: COVID-19 immunisation
     Dosage: FIRST DOSE, ONE IN ONCE
     Route: 030
  6. REQUIP [Concomitant]
     Active Substance: ROPINIROLE HYDROCHLORIDE
     Indication: Parkinson^s disease
     Dosage: 8 MILLIGRAM
     Route: 048
     Dates: start: 2018
  7. AMANTADINE SULFATE [Concomitant]
     Active Substance: AMANTADINE SULFATE
     Indication: Parkinson^s disease
     Dosage: 200 MILLIGRAM, FORM STRENGTH: 100 MILLIGRAM
     Route: 048
     Dates: start: 2018
  8. DOPADEX SR [Concomitant]
     Indication: Parkinson^s disease
     Dosage: 25 MILLIGRAM, FORM STRENGTH: 25 MILLIGRAM
     Route: 048
     Dates: start: 2015

REACTIONS (3)
  - Pneumonia [Fatal]
  - Aortic occlusion [Not Recovered/Not Resolved]
  - Carotid artery occlusion [Not Recovered/Not Resolved]
